FAERS Safety Report 9034811 (Version 1)
Quarter: 2013Q1

REPORT INFORMATION
  Report Type: Spontaneous
  Country: US (occurrence: None)
  Receive Date: 20130116
  Receipt Date: 20130116
  Transmission Date: 20140127
  Serious: Yes (Hospitalization)
  Sender: FDA-Public Use
  Company Number: None

PATIENT
  Sex: Male
  Weight: 82 kg

DRUGS (1)
  1. ALEMTUZUMAB [Suspect]

REACTIONS (3)
  - Pancytopenia [None]
  - Pneumonia [None]
  - Rash [None]
